FAERS Safety Report 9279499 (Version 2)
Quarter: 2013Q2

REPORT INFORMATION
  Report Type: Spontaneous
  Country: US (occurrence: US)
  Receive Date: 20130508
  Receipt Date: 20130524
  Transmission Date: 20140414
  Serious: Yes (Death)
  Sender: FDA-Public Use
  Company Number: US-ROCHE-1222682

PATIENT
  Sex: Female

DRUGS (9)
  1. AVASTIN [Suspect]
     Indication: BREAST CANCER METASTATIC
     Route: 065
     Dates: start: 201004, end: 201012
  2. AVASTIN [Suspect]
     Indication: MALIGNANT NEOPLASM OF SPINAL CORD
  3. XELODA [Suspect]
     Indication: PRODUCT USED FOR UNKNOWN INDICATION
     Route: 065
     Dates: start: 20110822, end: 20120105
  4. HERCEPTIN [Suspect]
     Indication: PRODUCT USED FOR UNKNOWN INDICATION
     Route: 065
     Dates: start: 20110208, end: 20110811
  5. CARBOPLATIN [Concomitant]
     Route: 065
     Dates: start: 201004, end: 201012
  6. TAXOTERE [Concomitant]
     Route: 065
     Dates: start: 201004, end: 201012
  7. FEMARA [Concomitant]
     Route: 065
     Dates: start: 20110208, end: 20110811
  8. GEMZAR [Concomitant]
     Route: 065
     Dates: start: 20120119, end: 201205
  9. NAVELBINE [Concomitant]
     Route: 065
     Dates: start: 20120119, end: 201205

REACTIONS (1)
  - Death [Fatal]
